FAERS Safety Report 11729193 (Version 3)
Quarter: 2015Q4

REPORT INFORMATION
  Report Type: Spontaneous
  Country: JP (occurrence: JP)
  Receive Date: 20151112
  Receipt Date: 20151216
  Transmission Date: 20160304
  Serious: Yes (Death, Other)
  Sender: FDA-Public Use
  Company Number: JP-BRISTOL-MYERS SQUIBB COMPANY-BMS-2014-005445

PATIENT
  Age: 64 Year
  Sex: Female
  Weight: 29 kg

DRUGS (7)
  1. ERBITUX [Suspect]
     Active Substance: CETUXIMAB
     Indication: HEAD AND NECK CANCER
     Dosage: 400 MG/M2, QD
     Route: 041
     Dates: start: 20141119, end: 20141119
  2. CISPLATIN. [Suspect]
     Active Substance: CISPLATIN
     Indication: MALIGNANT PALATE NEOPLASM
     Dosage: 80 MG/M2, QD
     Route: 041
     Dates: start: 20141119, end: 20141119
  3. CISPLATIN. [Suspect]
     Active Substance: CISPLATIN
     Dosage: 80 MG/M2, QD
     Route: 041
     Dates: start: 20150206, end: 20150209
  4. 5-FU                               /00098801/ [Suspect]
     Active Substance: FLUOROURACIL
     Indication: HEAD AND NECK CANCER
     Dosage: 1000 MG/M2, QD
     Route: 041
     Dates: start: 20141119, end: 20141122
  5. ERBITUX [Suspect]
     Active Substance: CETUXIMAB
     Indication: MALIGNANT PALATE NEOPLASM
     Dosage: 250 MG/M2, QWK
     Route: 041
     Dates: start: 20141126, end: 20141203
  6. 5-FU                               /00098801/ [Suspect]
     Active Substance: FLUOROURACIL
     Indication: MALIGNANT PALATE NEOPLASM
     Dosage: UNK UNK, QD
     Route: 041
     Dates: start: 20150206, end: 20150209
  7. ERBITUX [Suspect]
     Active Substance: CETUXIMAB
     Dosage: UNK UNK, QWK
     Route: 041
     Dates: start: 20150206, end: 20150220

REACTIONS (5)
  - Cardiac failure [Fatal]
  - Sepsis [Recovering/Resolving]
  - Hypomagnesaemia [Recovering/Resolving]
  - Rash [Recovered/Resolved]
  - Blood iron decreased [Recovered/Resolved]

NARRATIVE: CASE EVENT DATE: 20141202
